FAERS Safety Report 25880355 (Version 1)
Quarter: 2025Q4

REPORT INFORMATION
  Report Type: Report from Study
  Country: US (occurrence: US)
  Receive Date: 20251004
  Receipt Date: 20251004
  Transmission Date: 20260117
  Serious: Yes (Death, Hospitalization)
  Sender: ABBVIE
  Company Number: US-ABBVIE-6390182

PATIENT
  Age: 69 Year
  Sex: Male
  Weight: 92.986 kg

DRUGS (2)
  1. VENCLEXTA [Suspect]
     Active Substance: VENETOCLAX
     Indication: Leukaemia monocytic
     Dosage: TAKE 4 TABLET(S) BY MOUTH (400MG TOTAL) DAILY. TAKE ON DAYS 1-14 OF A 28-DAY CYCLE. TAKE WITH FOOD
     Route: 048
  2. VENCLEXTA [Suspect]
     Active Substance: VENETOCLAX
     Indication: Leukaemia monocytic
     Dosage: TIME INTERVAL: 0.33333333 DAYS
     Route: 048
     Dates: start: 20250722, end: 20250808

REACTIONS (3)
  - Leukaemia [Fatal]
  - Hospitalisation [Unknown]
  - Off label use [Unknown]
